FAERS Safety Report 9248520 (Version 3)
Quarter: 2013Q2

REPORT INFORMATION
  Report Type: Report from Study
  Country: US (occurrence: US)
  Receive Date: 20130423
  Receipt Date: 20130603
  Transmission Date: 20140414
  Serious: Yes (Other)
  Sender: FDA-Public Use
  Company Number: US-ROCHE-1214096

PATIENT
  Age: 79 Year
  Sex: Female
  Weight: 59.47 kg

DRUGS (4)
  1. XELODA [Suspect]
     Indication: BREAST CANCER METASTATIC
     Route: 048
     Dates: start: 20130221, end: 20130407
  2. XELODA [Suspect]
     Route: 048
     Dates: start: 20130501
  3. B12 COMPLEX [Concomitant]
     Indication: VITAMIN B12 DEFICIENCY
     Route: 030
  4. B12 COMPLEX [Concomitant]
     Indication: ANAEMIA

REACTIONS (18)
  - Skin discolouration [Not Recovered/Not Resolved]
  - Dysgeusia [Not Recovered/Not Resolved]
  - Decreased appetite [Not Recovered/Not Resolved]
  - Weight decreased [Not Recovered/Not Resolved]
  - Diarrhoea [Recovering/Resolving]
  - Dehydration [Recovering/Resolving]
  - Feeling abnormal [Not Recovered/Not Resolved]
  - Asthenia [Not Recovered/Not Resolved]
  - Thinking abnormal [Not Recovered/Not Resolved]
  - Oral mucosal blistering [Recovering/Resolving]
  - Thirst [Not Recovered/Not Resolved]
  - Dehydration [Recovered/Resolved]
  - Confusional state [Not Recovered/Not Resolved]
  - Lip blister [Not Recovered/Not Resolved]
  - Diarrhoea [Not Recovered/Not Resolved]
  - Hallucination [Recovered/Resolved]
  - Dizziness [Not Recovered/Not Resolved]
  - Dyspnoea [Not Recovered/Not Resolved]
